FAERS Safety Report 8979069 (Version 1)
Quarter: 2012Q4

REPORT INFORMATION
  Report Type: 
  Country: FR (occurrence: FR)
  Receive Date: 20121221
  Receipt Date: 20121221
  Transmission Date: 20130627
  Serious: Yes (Hospitalization)
  Sender: FDA-Public Use
  Company Number: FR-ASTRAZENECA-2012SE93540

PATIENT
  Age: 23216 Day
  Sex: Male

DRUGS (9)
  1. CRESTOR [Suspect]
     Route: 048
     Dates: end: 20121011
  2. VICTOZA [Suspect]
     Indication: TYPE 2 DIABETES MELLITUS
     Route: 058
     Dates: end: 20121009
  3. KARDEGIC [Concomitant]
  4. LERCANIDIPINE [Concomitant]
  5. PLAVIX [Concomitant]
  6. BISOCE [Concomitant]
  7. INSULATARD [Concomitant]
     Indication: TYPE 2 DIABETES MELLITUS
  8. INEXIUM [Concomitant]
  9. ACTRAPID [Concomitant]

REACTIONS (2)
  - Pyelonephritis acute [Unknown]
  - Pancreatitis acute [Recovered/Resolved]
